FAERS Safety Report 11394845 (Version 1)
Quarter: 2015Q3

REPORT INFORMATION
  Report Type: Spontaneous
  Country: US (occurrence: None)
  Receive Date: 20150817
  Receipt Date: 20150817
  Transmission Date: 20151125
  Serious: Yes (Life-Threatening, Other)
  Sender: FDA-Public Use
  Company Number: ADR-2015-01555

PATIENT
  Age: 44 Year
  Sex: Female

DRUGS (5)
  1. COMPOUNDED BACLOFEN INTRATHECAL [Suspect]
     Active Substance: BACLOFEN
     Indication: SPINAL PAIN
  2. MORPHINE INTRATHECAL [Suspect]
     Active Substance: MORPHINE
  3. FENTANYL INTRATHECAL [Suspect]
     Active Substance: FENTANYL
     Indication: SPINAL PAIN
  4. HYDROMORPHONE INTRATHECAL [Suspect]
     Active Substance: HYDROMORPHONE
  5. BUPIVACAINE INTRATHECAL [Suspect]
     Active Substance: BUPIVACAINE

REACTIONS (25)
  - Device failure [None]
  - Insomnia [None]
  - Drug effect decreased [None]
  - Muscle spasticity [None]
  - Fine motor skill dysfunction [None]
  - Erythema [None]
  - Pneumonia [None]
  - Device connection issue [None]
  - Blindness [None]
  - Loss of consciousness [None]
  - Apparent death [None]
  - Prescribed overdose [None]
  - Cerebrovascular accident [None]
  - Musculoskeletal stiffness [None]
  - Tinnitus [None]
  - Hypoaesthesia [None]
  - Dysgeusia [None]
  - Paraesthesia [None]
  - Incorrect route of drug administration [None]
  - Device occlusion [None]
  - Unresponsive to stimuli [None]
  - Dysphonia [None]
  - Headache [None]
  - H1N1 influenza [None]
  - Fall [None]
